FAERS Safety Report 4706886-5 (Version None)
Quarter: 2005Q3

REPORT INFORMATION
  Report Type: 
  Country: None (occurrence: None)
  Receive Date: 20050706
  Receipt Date: 20050705
  Transmission Date: 20060218
  Serious: Yes (Hospitalization)
  Sender: FDA-Public Use
  Company Number: US-RB-1849-2005

PATIENT
  Age: 20 Year
  Sex: Male

DRUGS (8)
  1. SUBOXONE [Suspect]
     Indication: DRUG DEPENDENCE
     Route: 060
     Dates: start: 20050607
  2. SUBOXONE [Suspect]
     Route: 060
     Dates: start: 20050618
  3. SEPTRA [Concomitant]
     Indication: INFECTION
     Route: 048
     Dates: start: 20050601, end: 20050607
  4. CLINDAMYCIN [Concomitant]
     Indication: INFECTION
     Route: 048
     Dates: start: 20050601, end: 20050607
  5. TRAZODONE [Concomitant]
     Indication: INSOMNIA
     Route: 048
     Dates: start: 20050606, end: 20050609
  6. METHOCARBAMOL [Concomitant]
     Indication: DRUG WITHDRAWAL SYNDROME
     Route: 048
     Dates: start: 20050606, end: 20050606
  7. RANITIDINE HYDROCHLORIDE [Concomitant]
     Indication: GASTROOESOPHAGEAL REFLUX DISEASE
     Route: 048
     Dates: start: 20050616, end: 20050617
  8. IBUPROFEN [Concomitant]
     Indication: PAIN
     Route: 048
     Dates: start: 20050601, end: 20050607

REACTIONS (5)
  - CHEST PAIN [None]
  - DRUG ABUSER [None]
  - ELECTROCARDIOGRAM QT PROLONGED [None]
  - ELECTROCARDIOGRAM ST-T SEGMENT ABNORMAL [None]
  - ELECTROCARDIOGRAM U-WAVE ABNORMALITY [None]
